FAERS Safety Report 9772749 (Version 1)
Quarter: 2013Q4

REPORT INFORMATION
  Report Type: Spontaneous
  Country: US (occurrence: US)
  Receive Date: 20131219
  Receipt Date: 20131219
  Transmission Date: 20140711
  Serious: Yes (Other)
  Sender: FDA-Public Use
  Company Number: US-PFIZER INC-2013362164

PATIENT
  Sex: Female

DRUGS (2)
  1. CHANTIX [Suspect]
     Dosage: UNK
     Dates: start: 2009
  2. CHANTIX [Suspect]
     Dosage: UNK
     Dates: start: 2012

REACTIONS (3)
  - Suicidal ideation [Unknown]
  - Abnormal dreams [Unknown]
  - Depressed mood [Unknown]
